FAERS Safety Report 16780147 (Version 1)
Quarter: 2019Q3

REPORT INFORMATION
  Report Type: Spontaneous
  Country: CN (occurrence: CN)
  Receive Date: 20190906
  Receipt Date: 20190906
  Transmission Date: 20191005
  Serious: Yes (Hospitalization, Other)
  Sender: FDA-Public Use
  Company Number: CN-MYLANLABS-2019M1083275

PATIENT
  Age: 51 Year
  Sex: Female
  Weight: 76 kg

DRUGS (1)
  1. CALCITONIN SALMON MYLAN [Suspect]
     Active Substance: CALCITONIN SALMON
     Indication: SYNOVITIS
     Dosage: 50 INTERNATIONAL UNIT, QD
     Route: 030
     Dates: start: 20190820, end: 20190820

REACTIONS (2)
  - Anaphylactoid reaction [Recovering/Resolving]
  - Off label use [Recovered/Resolved]

NARRATIVE: CASE EVENT DATE: 20190820
